FAERS Safety Report 12342691 (Version 1)
Quarter: 2016Q2

REPORT INFORMATION
  Report Type: Spontaneous
  Country: US (occurrence: US)
  Receive Date: 20160506
  Receipt Date: 20160506
  Transmission Date: 20160815
  Serious: No
  Sender: FDA-Public Use
  Company Number: US-TEVA-657491USA

PATIENT
  Age: 48 Year
  Sex: Female

DRUGS (1)
  1. COPAXONE [Suspect]
     Active Substance: GLATIRAMER ACETATE
     Indication: MULTIPLE SCLEROSIS
     Dosage: 1.9048 MILLIGRAM DAILY;
     Route: 058
     Dates: start: 2014

REACTIONS (6)
  - Asthenia [Unknown]
  - Tremor [Unknown]
  - Hyperhidrosis [Unknown]
  - Feeling cold [Unknown]
  - Erythema [Recovered/Resolved]
  - Feeling hot [Unknown]

NARRATIVE: CASE EVENT DATE: 20160422
